FAERS Safety Report 9217243 (Version 4)
Quarter: 2013Q3

REPORT INFORMATION
  Report Type: Spontaneous
  Country: SE (occurrence: SE)
  Receive Date: 20130408
  Receipt Date: 20130704
  Transmission Date: 20140515
  Serious: Yes (Hospitalization)
  Sender: FDA-Public Use
  Company Number: SE-ROCHE-1209397

PATIENT
  Age: 91 Year
  Sex: Male

DRUGS (2)
  1. AVASTIN [Suspect]
     Indication: AGE-RELATED MACULAR DEGENERATION
     Route: 065
     Dates: start: 20120618
  2. AVASTIN [Suspect]
     Route: 065
     Dates: end: 20120716

REACTIONS (4)
  - Cerebral infarction [Unknown]
  - Dizziness [Unknown]
  - Balance disorder [Unknown]
  - Visual acuity reduced [Unknown]
